FAERS Safety Report 10010694 (Version 1)
Quarter: 2014Q1

REPORT INFORMATION
  Report Type: Spontaneous
  Country: DE (occurrence: None)
  Receive Date: 20140311
  Receipt Date: 20140311
  Transmission Date: 20141002
  Serious: Yes (Hospitalization)
  Sender: FDA-Public Use
  Company Number: 2223308

PATIENT
  Age: 75 Year
  Sex: Male

DRUGS (4)
  1. OXALIPLATIN [Suspect]
     Indication: COLORECTAL ADENOCARCINOMA
     Dosage: 400 MG/M 2 MILLIGRAM(S)/SQ. METER ?INTRAVENOUS (NOT OTHERWISE SPECIFIED)
     Route: 042
  2. OXALIPLATIN [Suspect]
     Indication: NEOPLASM MALIGNANT
     Dosage: 400 MG/M 2 MILLIGRAM(S)/SQ. METER ?INTRAVENOUS (NOT OTHERWISE SPECIFIED)
     Route: 042
  3. (LEUCOVORIN /00566701/) [Concomitant]
  4. (FLUOROURACIL) [Concomitant]

REACTIONS (7)
  - Hypersensitivity vasculitis [None]
  - Glomerulonephritis acute [None]
  - Renal failure acute [None]
  - Arthralgia [None]
  - Hypochromic anaemia [None]
  - Toxicity to various agents [None]
  - Haematuria [None]
